FAERS Safety Report 23516826 (Version 1)
Quarter: 2024Q1

REPORT INFORMATION
  Report Type: Spontaneous
  Country: US (occurrence: None)
  Receive Date: 20240212
  Receipt Date: 20240212
  Transmission Date: 20240410
  Serious: Yes (Other)
  Sender: FDA-Public Use
  Company Number: None

PATIENT
  Age: 69 Year
  Sex: Female
  Weight: 67.5 kg

DRUGS (7)
  1. ENTRESTO [Suspect]
     Active Substance: SACUBITRIL\VALSARTAN
     Indication: Stress cardiomyopathy
     Dates: start: 20240117, end: 20240205
  2. LOSARTAN [Concomitant]
     Active Substance: LOSARTAN
  3. CARVEDILOL [Concomitant]
     Active Substance: CARVEDILOL
  4. SPIRONOLACTONE [Concomitant]
     Active Substance: SPIRONOLACTONE
  5. LOW DOSE ASPIRIN [Concomitant]
     Active Substance: ASPIRIN
  6. MENAQUINONE 6 [Concomitant]
     Active Substance: MENAQUINONE 6
  7. COENZYME Q10 [Concomitant]
     Active Substance: DIETARY SUPPLEMENT\UBIDECARENONE

REACTIONS (12)
  - Product substitution issue [None]
  - Depression [None]
  - Panic attack [None]
  - Myalgia [None]
  - Insomnia [None]
  - Orthostatic hypotension [None]
  - Metabolic function test abnormal [None]
  - Blood creatinine increased [None]
  - Blood urea increased [None]
  - Glomerular filtration rate decreased [None]
  - Lethargy [None]
  - Crying [None]

NARRATIVE: CASE EVENT DATE: 20240207
